FAERS Safety Report 24116010 (Version 3)
Quarter: 2025Q3

REPORT INFORMATION
  Report Type: Report from Study
  Country: US (occurrence: US)
  Receive Date: 20240722
  Receipt Date: 20250710
  Transmission Date: 20251021
  Serious: Yes (Other)
  Sender: UCB
  Company Number: US-UCBSA-2024036482

PATIENT
  Age: 16 Year
  Sex: Female
  Weight: 48.5 kg

DRUGS (1)
  1. FINTEPLA [Suspect]
     Active Substance: FENFLURAMINE
     Indication: Severe myoclonic epilepsy of infancy
     Dates: start: 2021

REACTIONS (1)
  - Pulmonary valve incompetence [Unknown]

NARRATIVE: CASE EVENT DATE: 20240711
